FAERS Safety Report 7253184 (Version 2)
Quarter: 2014Q3

REPORT INFORMATION
  Report Type: Spontaneous
  Country: US (occurrence: None)
  Receive Date: 20100113
  Receipt Date: 20140701
  Transmission Date: 20150326
  Serious: Yes (Hospitalization, Other)
  Sender: FDA-Public Use
  Company Number: 2010S1000012

PATIENT
  Age: 50 Year
  Sex: Male

DRUGS (6)
  1. MOTRIN [Concomitant]
     Active Substance: IBUPROFEN
  2. PHOSPHO-SODA [Suspect]
     Active Substance: SODIUM PHOSPHATE, DIBASIC\SODIUM PHOSPHATE, MONOBASIC
     Indication: COLONOSCOPY
     Route: 048
  3. WELLBUTRIN [Concomitant]
     Active Substance: BUPROPION HYDROCHLORIDE
  4. LISINOPRIL (LISINOPRIL) [Concomitant]
     Active Substance: LISINOPRIL
  5. ULTRAM (TRAMADOL HYDROCHLORIDE) [Concomitant]
     Active Substance: TRAMADOL HYDROCHLORIDE
  6. CELEBREX [Concomitant]
     Active Substance: CELECOXIB

REACTIONS (23)
  - Thrombocytopenia [None]
  - Dialysis [None]
  - Anxiety [None]
  - Antinuclear antibody increased [None]
  - Fatigue [None]
  - Oedema peripheral [None]
  - Nephrogenic anaemia [None]
  - Decreased appetite [None]
  - Chronic obstructive pulmonary disease [None]
  - Renal transplant [None]
  - Pneumonia [None]
  - Encephalopathy [None]
  - Depression [None]
  - Asthenia [None]
  - Inappropriate antidiuretic hormone secretion [None]
  - Right atrial dilatation [None]
  - Hyponatraemia [None]
  - Renal failure acute [None]
  - Hypovolaemia [None]
  - Left atrial dilatation [None]
  - Renal failure chronic [None]
  - Microangiopathic haemolytic anaemia [None]
  - Fluid overload [None]

NARRATIVE: CASE EVENT DATE: 20090317
